FAERS Safety Report 13972089 (Version 1)
Quarter: 2017Q3

REPORT INFORMATION
  Report Type: Spontaneous
  Country: US (occurrence: None)
  Receive Date: 20170914
  Receipt Date: 20170914
  Transmission Date: 20171128
  Serious: No
  Sender: FDA-Public Use
  Company Number: None

PATIENT
  Age: 39 Year
  Sex: Female

DRUGS (1)
  1. NEXAVAR [Suspect]
     Active Substance: SORAFENIB
     Indication: GASTROINTESTINAL STROMAL TUMOUR
     Route: 048
     Dates: start: 20170614

REACTIONS (4)
  - Dehydration [None]
  - Urinary tract infection [None]
  - Blood pressure decreased [None]
  - Dry skin [None]

NARRATIVE: CASE EVENT DATE: 20170901
